FAERS Safety Report 9902063 (Version 2)
Quarter: 2014Q1

REPORT INFORMATION
  Report Type: Spontaneous
  Country: US (occurrence: US)
  Receive Date: 20140217
  Receipt Date: 20140217
  Transmission Date: 20141002
  Serious: No
  Sender: FDA-Public Use
  Company Number: US-GILEAD-2011-0047969

PATIENT
  Age: 76 Year
  Sex: Female

DRUGS (2)
  1. LETAIRIS [Suspect]
     Indication: PULMONARY HYPERTENSION
     Dosage: 5 MG, UNK
     Route: 048
     Dates: start: 20111114
  2. LETAIRIS [Suspect]
     Indication: SCLERODERMA

REACTIONS (3)
  - Nasopharyngitis [Unknown]
  - Cough [Unknown]
  - Cystitis [Unknown]
